FAERS Safety Report 14572027 (Version 2)
Quarter: 2018Q1

REPORT INFORMATION
  Report Type: Report from Study
  Country: SA (occurrence: SA)
  Receive Date: 20180226
  Receipt Date: 20180309
  Transmission Date: 20180509
  Serious: Yes (Other)
  Sender: FDA-Public Use
  Company Number: SA-ELI_LILLY_AND_COMPANY-SA201802010111

PATIENT
  Sex: Female

DRUGS (1)
  1. TERIPARATIDE [Suspect]
     Active Substance: TERIPARATIDE
     Indication: OSTEOPOROSIS
     Dosage: UNK UNK, DAILY
     Route: 058

REACTIONS (1)
  - Deep vein thrombosis [Unknown]
